FAERS Safety Report 12420404 (Version 1)
Quarter: 2016Q2

REPORT INFORMATION
  Report Type: Spontaneous
  Country: US (occurrence: US)
  Receive Date: 20160531
  Receipt Date: 20160531
  Transmission Date: 20160815
  Serious: Yes (Other)
  Sender: FDA-Public Use
  Company Number: US-TEIKOKU PHARMA USA-TPU2016-00327

PATIENT
  Sex: Female
  Weight: 75.82 kg

DRUGS (4)
  1. LIDOCAINE PATCH [Suspect]
     Active Substance: LIDOCAINE
     Indication: SCIATICA
  2. NAPROXEN. [Suspect]
     Active Substance: NAPROXEN
  3. LIDOCAINE PATCH [Suspect]
     Active Substance: LIDOCAINE
     Indication: BACK PAIN
     Dosage: AS NEEDED, 1-3 PATCHES EVERY 12 HOURS
     Route: 061
     Dates: start: 2008
  4. MOBIC [Suspect]
     Active Substance: MELOXICAM

REACTIONS (6)
  - Fibromyalgia [Unknown]
  - Spinal operation [Unknown]
  - Drug ineffective for unapproved indication [Unknown]
  - Limb discomfort [Not Recovered/Not Resolved]
  - Abdominal discomfort [Unknown]
  - Musculoskeletal pain [Not Recovered/Not Resolved]

NARRATIVE: CASE EVENT DATE: 2008
